FAERS Safety Report 8768995 (Version 6)
Quarter: 2013Q2

REPORT INFORMATION
  Report Type: Spontaneous
  Country: US (occurrence: US)
  Receive Date: 20120904
  Receipt Date: 20130618
  Transmission Date: 20140414
  Serious: Yes (Hospitalization, Disabling, Other)
  Sender: FDA-Public Use
  Company Number: US-009507513-1208USA012382

PATIENT
  Sex: Female
  Weight: 72.56 kg

DRUGS (4)
  1. FOSAMAX [Suspect]
     Indication: OSTEOPOROSIS PROPHYLAXIS
     Dosage: 10 MG, QD
     Route: 048
     Dates: start: 200104, end: 200804
  2. FOSAMAX [Suspect]
     Dosage: 70 MG, QW
     Route: 048
     Dates: start: 200104, end: 200804
  3. ALENDRONATE SODIUM [Suspect]
     Indication: OSTEOPOROSIS PROPHYLAXIS
     Dosage: 70 MG, QW
     Dates: start: 200802
  4. NASONEX [Concomitant]
     Indication: HYPERSENSITIVITY
     Dosage: UNK
     Route: 045
     Dates: start: 2005

REACTIONS (19)
  - Intramedullary rod insertion [Not Recovered/Not Resolved]
  - Femur fracture [Unknown]
  - Femur fracture [Not Recovered/Not Resolved]
  - Surgery [Unknown]
  - Osteoporosis [Not Recovered/Not Resolved]
  - Stress fracture [Not Recovered/Not Resolved]
  - Spinal laminectomy [Unknown]
  - Skin cancer [Unknown]
  - Deafness [Unknown]
  - Blood sodium decreased [Unknown]
  - Femur fracture [Not Recovered/Not Resolved]
  - Fracture delayed union [Recovered/Resolved]
  - Impaired healing [Recovered/Resolved]
  - Tonsillectomy [Unknown]
  - Spinal laminectomy [Unknown]
  - Pneumonia [Unknown]
  - Hypertension [Unknown]
  - Arthritis [Unknown]
  - Asthenia [Recovered/Resolved]
